FAERS Safety Report 9601025 (Version 1)
Quarter: 2013Q4

REPORT INFORMATION
  Report Type: Spontaneous
  Country: US (occurrence: US)
  Receive Date: 20131004
  Receipt Date: 20131004
  Transmission Date: 20140711
  Serious: No
  Sender: FDA-Public Use
  Company Number: US-AMGEN-USASP2013038126

PATIENT
  Age: 57 Year
  Sex: Male
  Weight: 104.31 kg

DRUGS (3)
  1. ENBREL [Suspect]
     Indication: PRODUCT USED FOR UNKNOWN INDICATION
     Dosage: 50 MG, ONCE A WEEK
     Route: 058
  2. MULTIVITAMINS, PLAIN [Concomitant]
     Dosage: UNK
  3. TAMSULOSIN [Concomitant]
     Dosage: 0.4 MG, UNK

REACTIONS (2)
  - Local swelling [Unknown]
  - Skin ulcer [Unknown]
